FAERS Safety Report 9449373 (Version 1)
Quarter: 2013Q3

REPORT INFORMATION
  Report Type: Report from Study
  Country: GB (occurrence: GB)
  Receive Date: 20130809
  Receipt Date: 20130809
  Transmission Date: 20140515
  Serious: Yes (Other)
  Sender: FDA-Public Use
  Company Number: GB-ROCHE-1259348

PATIENT
  Sex: 0
  Weight: 16.6 kg

DRUGS (16)
  1. BEVACIZUMAB [Suspect]
     Indication: BRAIN NEOPLASM MALIGNANT
     Dosage: LAST DOSE ADMINISTERED: 165 UNITS, DATE OF LAST DOSE ADMINISTERED: 11/JUL/2013
     Route: 065
     Dates: start: 20130711
  2. TEMOZOLOMIDE [Suspect]
     Indication: BRAIN NEOPLASM MALIGNANT
     Dosage: DATE OF LAST DOSE ADMINISTERED: 15/JUL/2013, LAST DOSE ADMINISTERED: 145 UNITS
     Route: 065
     Dates: start: 20130711
  3. ATENOLOL [Concomitant]
  4. DOMPERIDON [Concomitant]
  5. URSODEOXYCHOLIC ACID [Concomitant]
  6. COTRIMOXAZOLE [Concomitant]
  7. SODIUM CHLORIDE [Concomitant]
  8. DEXAMETHASONE [Concomitant]
  9. LANSOPRAZOLE [Concomitant]
  10. ONDANSETRON [Concomitant]
  11. MOVICOL [Concomitant]
  12. GENTAMICIN [Concomitant]
  13. METRONIDAZOLE [Concomitant]
  14. PARACETAMOL [Concomitant]
  15. BUSCOPAN [Concomitant]
  16. ORAMORPH [Concomitant]
     Route: 048

REACTIONS (1)
  - Convulsion [Recovered/Resolved]
